FAERS Safety Report 19396297 (Version 1)
Quarter: 2021Q2

REPORT INFORMATION
  Report Type: Spontaneous
  Country: US (occurrence: US)
  Receive Date: 20210610
  Receipt Date: 20210610
  Transmission Date: 20210717
  Serious: Yes (Other)
  Sender: FDA-Public Use
  Company Number: US-CIPLA LTD.-2021US03923

PATIENT

DRUGS (11)
  1. SALBUTAMOL [Suspect]
     Active Substance: ALBUTEROL
     Indication: ASTHMA
     Dosage: 90 ?G, 1?2 PUFFS, AS NEEDED
  2. SALBUTAMOL [Suspect]
     Active Substance: ALBUTEROL
     Dosage: UNK, OVER 7 TIMES A WEEK
  3. PREDNISONE. [Suspect]
     Active Substance: PREDNISONE
     Indication: ASTHMA
     Dosage: UNK, PRN
     Route: 065
  4. MONTELUKAST [Suspect]
     Active Substance: MONTELUKAST SODIUM
     Indication: ASTHMA
     Dosage: UNK, QD (AT NIGHT)
     Route: 065
  5. SODIUM VALPROATE [Concomitant]
     Active Substance: VALPROATE SODIUM
     Indication: PRODUCT USED FOR UNKNOWN INDICATION
     Dosage: 25 MILLIGRAM/KILOGRAM
     Route: 065
  6. FLUTICASONE PROPIONATE. [Suspect]
     Active Substance: FLUTICASONE PROPIONATE
     Dosage: 2 PUFFS TWICE DAILY
  7. SALBUTAMOL [Suspect]
     Active Substance: ALBUTEROL
     Dosage: 2 PUFFS, TID (THRICE DAILY)
  8. PREDNISONE. [Suspect]
     Active Substance: PREDNISONE
     Dosage: 10 MILLIGRAMS FOR 3 DAYS
     Route: 065
  9. SALBUTAMOL [Suspect]
     Active Substance: ALBUTEROL
     Dosage: UNK, DECREASED TO APPROXIMATELY 2?3 TIMES PER WEEK
  10. FLUTICASONE PROPIONATE. [Suspect]
     Active Substance: FLUTICASONE PROPIONATE
     Indication: ASTHMA
     Dosage: 1 PUFF, TWICE DAILY
  11. PREDNISONE. [Suspect]
     Active Substance: PREDNISONE
     Dosage: 20 MILLIGRAMS FOR 3 DAYS
     Route: 065

REACTIONS (1)
  - Asthma [Recovering/Resolving]
